FAERS Safety Report 9016761 (Version 1)
Quarter: 2013Q1

REPORT INFORMATION
  Report Type: Spontaneous
  Country: US (occurrence: US)
  Receive Date: 20130116
  Receipt Date: 20130116
  Transmission Date: 20140127
  Serious: Yes (Other)
  Sender: FDA-Public Use
  Company Number: US-PFIZER INC-2013018330

PATIENT
  Sex: Male

DRUGS (3)
  1. EFFEXOR [Suspect]
     Dosage: UNK
  2. RISPERDAL [Suspect]
     Dosage: UNK
  3. ZYPREXA [Suspect]
     Dosage: UNK

REACTIONS (3)
  - Diabetes mellitus [Unknown]
  - Hypoglycaemia [Unknown]
  - Blood glucose increased [Unknown]
